FAERS Safety Report 17598003 (Version 2)
Quarter: 2021Q4

REPORT INFORMATION
  Report Type: Spontaneous
  Country: US (occurrence: US)
  Receive Date: 20200330
  Receipt Date: 20211215
  Transmission Date: 20220304
  Serious: No
  Sender: FDA-Public Use
  Company Number: US-PFIZER INC-2020126829

PATIENT
  Age: 72 Year

DRUGS (1)
  1. ZOLOFT [Suspect]
     Active Substance: SERTRALINE HYDROCHLORIDE
     Indication: Anxiety
     Dosage: 50 MG, UNK

REACTIONS (4)
  - Blood cholesterol abnormal [Unknown]
  - Hypertension [Unknown]
  - Confusional state [Unknown]
  - Memory impairment [Unknown]
